FAERS Safety Report 9306676 (Version 2)
Quarter: 2014Q3

REPORT INFORMATION
  Report Type: Report from Study
  Country: US (occurrence: US)
  Receive Date: 20130523
  Receipt Date: 20140705
  Transmission Date: 20150326
  Serious: Yes (Other)
  Sender: FDA-Public Use
  Company Number: US-ALEXION-A201300826

PATIENT

DRUGS (2)
  1. SOLIRIS [Suspect]
     Active Substance: ECULIZUMAB
     Dosage: 900 MG, Q12 DAYS
     Route: 042
  2. SOLIRIS [Suspect]
     Active Substance: ECULIZUMAB
     Indication: PAROXYSMAL NOCTURNAL HAEMOGLOBINURIA
     Dosage: 1200MG, UNK
     Route: 042

REACTIONS (4)
  - Aplastic anaemia [Unknown]
  - Blood iron decreased [Unknown]
  - Blood lactate dehydrogenase increased [Not Recovered/Not Resolved]
  - Haemoglobin increased [Not Recovered/Not Resolved]
